FAERS Safety Report 19356577 (Version 1)
Quarter: 2021Q2

REPORT INFORMATION
  Report Type: Spontaneous
  Country: US (occurrence: US)
  Receive Date: 20210601
  Receipt Date: 20210601
  Transmission Date: 20210717
  Serious: Yes (Other)
  Sender: FDA-Public Use
  Company Number: None

PATIENT
  Age: 83 Year
  Sex: Female

DRUGS (1)
  1. ELIQUIS [Suspect]
     Active Substance: APIXABAN
     Route: 048

REACTIONS (5)
  - Product label confusion [None]
  - Internal haemorrhage [None]
  - Incorrect dose administered [None]
  - Fall [None]
  - Contusion [None]

NARRATIVE: CASE EVENT DATE: 20210201
